FAERS Safety Report 10060722 (Version 2)
Quarter: 2014Q2

REPORT INFORMATION
  Report Type: Spontaneous
  Country: US (occurrence: US)
  Receive Date: 20140404
  Receipt Date: 20140410
  Transmission Date: 20141212
  Serious: Yes (Other)
  Sender: FDA-Public Use
  Company Number: CHPA2014US004842

PATIENT
  Age: 63 Year
  Sex: Female

DRUGS (1)
  1. GAS-X [Suspect]
     Dosage: UNK
     Route: 048

REACTIONS (1)
  - Glaucoma [Not Recovered/Not Resolved]
